FAERS Safety Report 9041304 (Version 1)
Quarter: 2013Q1

REPORT INFORMATION
  Report Type: Spontaneous
  Country: US (occurrence: None)
  Receive Date: 20130114
  Receipt Date: 20130114
  Transmission Date: 20140127
  Serious: Yes (Other)
  Sender: FDA-Public Use
  Company Number: TPA2012A01957

PATIENT
  Age: 53 Year
  Sex: Male

DRUGS (5)
  1. ACTOS (PIOGLITAZONE HYDROCHLORIDE) [Suspect]
     Indication: TYPE 2 DIABETES MELLITUS
     Dates: start: 20090520
  2. METFORMIN (METFORMIN) [Concomitant]
  3. GLUCOPHAGE (METFORMIN HYDROCHLORIDE) [Concomitant]
  4. LISPRO INSULIN (INSULIN LISPRO) [Concomitant]
  5. GLUCOTROL (GLIPIZIDE) [Concomitant]

REACTIONS (2)
  - Injury [None]
  - Myocardial infarction [None]
